FAERS Safety Report 7065931-5 (Version None)
Quarter: 2010Q4

REPORT INFORMATION
  Report Type: 
  Country: None (occurrence: None)
  Receive Date: 20101027
  Receipt Date: 20101022
  Transmission Date: 20110411
  Serious: Yes (Hospitalization)
  Sender: FDA-Public Use
  Company Number: FR-GILEAD-2010-0029850

PATIENT
  Age: 47 Year
  Sex: Male

DRUGS (8)
  1. TRUVADA [Suspect]
     Indication: HIV INFECTION
     Route: 048
     Dates: start: 20100426, end: 20100508
  2. BACTRIM [Suspect]
     Route: 048
     Dates: start: 20100414, end: 20100504
  3. REYATAZ [Suspect]
     Indication: HIV INFECTION
     Route: 048
     Dates: start: 20100426, end: 20100508
  4. NORVIR [Suspect]
     Indication: HIV INFECTION
     Route: 048
     Dates: start: 20100426, end: 20100508
  5. LYRICA [Concomitant]
  6. TOPALGIC [Concomitant]
  7. VALACYCLOVIR HYDROCHLORIDE [Concomitant]
  8. TARKA [Concomitant]

REACTIONS (1)
  - DRUG RASH WITH EOSINOPHILIA AND SYSTEMIC SYMPTOMS [None]
